FAERS Safety Report 6140629-6 (Version None)
Quarter: 2009Q2

REPORT INFORMATION
  Report Type: 
  Country: None (occurrence: None)
  Receive Date: 20090402
  Receipt Date: 20090325
  Transmission Date: 20091009
  Serious: Yes (Hospitalization)
  Sender: FDA-Public Use
  Company Number: CA-WYE-G02637908

PATIENT
  Sex: Male

DRUGS (8)
  1. TEMSIROLIMUS [Suspect]
     Indication: METASTATIC RENAL CELL CARCINOMA
     Route: 042
     Dates: start: 20080915, end: 20081124
  2. TEMSIROLIMUS [Suspect]
     Route: 042
     Dates: start: 20081201
  3. SENOKOT [Concomitant]
     Indication: CONSTIPATION
     Route: 048
  4. FUROSEMIDE [Concomitant]
     Indication: RENAL FAILURE
     Route: 048
  5. FUROSEMIDE [Concomitant]
     Indication: OEDEMA
  6. ASPIRIN [Concomitant]
  7. NORVASC [Concomitant]
     Indication: HYPERTENSION
     Route: 048
  8. ELTROXIN [Concomitant]
     Indication: HYPOTHYROIDISM
     Dosage: .1 MG EVERY
     Route: 048

REACTIONS (5)
  - COMPUTERISED TOMOGRAM ABNORMAL [None]
  - COUGH [None]
  - DYSPNOEA [None]
  - PNEUMONIA [None]
  - TYPE 1 DIABETES MELLITUS [None]
